FAERS Safety Report 19472948 (Version 1)
Quarter: 2021Q2

REPORT INFORMATION
  Report Type: Spontaneous
  Country: CA (occurrence: CA)
  Receive Date: 20210629
  Receipt Date: 20210629
  Transmission Date: 20210717
  Serious: Yes (Life-Threatening, Other)
  Sender: FDA-Public Use
  Company Number: CA-SA-2021SA210464

PATIENT
  Age: 43 Year
  Sex: Female

DRUGS (17)
  1. GLYCERIN [GLYCEROL] [Concomitant]
     Active Substance: GLYCERIN
  2. DIAZEPAM. [Concomitant]
     Active Substance: DIAZEPAM
  3. IPRATROPIUM [Concomitant]
     Active Substance: IPRATROPIUM
  4. MIRTAZAPINE. [Concomitant]
     Active Substance: MIRTAZAPINE
  5. ZOPICLONE [Concomitant]
     Active Substance: ZOPICLONE
  6. MULTIVITAMINES AND MINERALS [Concomitant]
     Active Substance: MINERALS\VITAMINS
  7. SERTRALINE [Concomitant]
     Active Substance: SERTRALINE HYDROCHLORIDE
  8. LOVENOX [Suspect]
     Active Substance: ENOXAPARIN SODIUM
     Indication: THROMBOSIS PROPHYLAXIS
     Dosage: FORMULATION:SOLUTION SUBCUTANEOUS
     Route: 058
  9. FLOVENT [Concomitant]
     Active Substance: FLUTICASONE PROPIONATE
  10. HYDROMORPHONE [Concomitant]
     Active Substance: HYDROMORPHONE
  11. NICOTINE. [Concomitant]
     Active Substance: NICOTINE
  12. PANTOPRAZOLE [Concomitant]
     Active Substance: PANTOPRAZOLE
  13. LOVENOX [Suspect]
     Active Substance: ENOXAPARIN SODIUM
     Indication: DEEP VEIN THROMBOSIS
  14. IBUPROFEN. [Concomitant]
     Active Substance: IBUPROFEN
  15. CEFTRIAXONE. [Concomitant]
     Active Substance: CEFTRIAXONE
     Route: 030
  16. LACTOBACILLUS REUTERI [Concomitant]
     Active Substance: LACTOBACILLUS REUTERI
  17. QUETIAPINE. [Concomitant]
     Active Substance: QUETIAPINE

REACTIONS (6)
  - Haemoglobin decreased [Unknown]
  - Nausea [Unknown]
  - Vomiting [Unknown]
  - Haematemesis [Unknown]
  - Tachycardia [Unknown]
  - Hypotension [Unknown]
